FAERS Safety Report 4964328-9 (Version None)
Quarter: 2006Q2

REPORT INFORMATION
  Report Type: 
  Country: None (occurrence: None)
  Receive Date: 20060406
  Receipt Date: 20060328
  Transmission Date: 20061013
  Serious: Yes (Death, Hospitalization)
  Sender: FDA-Public Use
  Company Number: IT-JNJFOC-20030901844

PATIENT
  Age: 68 Year
  Sex: Female

DRUGS (3)
  1. CAELYX [Suspect]
     Route: 042
     Dates: start: 20030815, end: 20030815
  2. GEMCITABINE [Suspect]
     Indication: BREAST CANCER
     Route: 042
     Dates: start: 20030815, end: 20030822
  3. ACE INHIBITOR [Concomitant]

REACTIONS (7)
  - ANAEMIA [None]
  - DYSPNOEA [None]
  - HYPERTENSION [None]
  - NEUTROPENIA [None]
  - PLEURAL EFFUSION [None]
  - PULMONARY EMBOLISM [None]
  - THROMBOCYTOPENIA [None]
